FAERS Safety Report 24647742 (Version 1)
Quarter: 2024Q4

REPORT INFORMATION
  Report Type: Spontaneous
  Country: BR (occurrence: BR)
  Receive Date: 20241121
  Receipt Date: 20241121
  Transmission Date: 20250115
  Serious: Yes (Hospitalization, Other)
  Sender: BOEHRINGER INGELHEIM
  Company Number: BR-Komodo Health-a23aa000004GSE9AAO

PATIENT
  Age: 76 Year
  Sex: Male

DRUGS (2)
  1. PRADAXA [Suspect]
     Active Substance: DABIGATRAN ETEXILATE MESYLATE
     Indication: Craniocerebral injury
     Route: 048
     Dates: start: 2022
  2. PRADAXA [Suspect]
     Active Substance: DABIGATRAN ETEXILATE MESYLATE
     Indication: Hydrocephalus

REACTIONS (7)
  - Craniocerebral injury [Unknown]
  - Respiratory disorder [Unknown]
  - Hydrocephalus [Unknown]
  - Condition aggravated [Unknown]
  - Hip fracture [Unknown]
  - Lung disorder [Unknown]
  - Bedridden [Unknown]

NARRATIVE: CASE EVENT DATE: 20220101
